FAERS Safety Report 8031219-9 (Version None)
Quarter: 2012Q1

REPORT INFORMATION
  Report Type: 
  Country: None (occurrence: None)
  Receive Date: 20120109
  Receipt Date: 20120105
  Transmission Date: 20120608
  Serious: Yes (Other)
  Sender: FDA-Public Use
  Company Number: AT-ABBOTT-11P-009-0838430-00

PATIENT
  Sex: Female

DRUGS (8)
  1. HUMIRA [Suspect]
     Route: 058
     Dates: start: 20100101, end: 20110521
  2. FOLSAN [Concomitant]
     Indication: PRODUCT USED FOR UNKNOWN INDICATION
     Route: 048
     Dates: start: 20110501
  3. LOVENOX [Concomitant]
     Indication: ANTIPHOSPHOLIPID SYNDROME
     Route: 058
     Dates: start: 20110401
  4. CALCIUM CARBONATE W/COLECALCIFEROL [Concomitant]
     Indication: RHEUMATOID ARTHRITIS
     Route: 048
     Dates: start: 20090101
  5. HUMIRA [Suspect]
     Route: 058
     Dates: start: 20080501, end: 20090201
  6. SULFASALAZINE [Concomitant]
     Route: 048
     Dates: start: 20090201
  7. HUMIRA [Suspect]
     Indication: RHEUMATOID ARTHRITIS
     Route: 058
     Dates: start: 20051101, end: 20070901
  8. SULFASALAZINE [Concomitant]
     Indication: RHEUMATOID ARTHRITIS
     Route: 048
     Dates: start: 20080601

REACTIONS (1)
  - ABORTION SPONTANEOUS [None]
